FAERS Safety Report 12635358 (Version 1)
Quarter: 2016Q3

REPORT INFORMATION
  Report Type: Report from Study
  Country: DE (occurrence: DE)
  Receive Date: 20160808
  Receipt Date: 20160808
  Transmission Date: 20161109
  Serious: Yes (Hospitalization, Other)
  Sender: FDA-Public Use
  Company Number: DE-TEVA-451805USA

PATIENT
  Age: 84 Year
  Sex: Female

DRUGS (23)
  1. RITUXIMAB [Suspect]
     Active Substance: RITUXIMAB
     Route: 042
     Dates: start: 20130715
  2. TORASEMIDE [Concomitant]
     Active Substance: TORSEMIDE
  3. PANTOPRAZOLE SODIUM SESQUIHYDRATE [Concomitant]
     Active Substance: PANTOPRAZOLE SODIUM
  4. METAMIZOLE SODIUM [Concomitant]
     Active Substance: METAMIZOLE SODIUM
  5. VALSARTAN. [Concomitant]
     Active Substance: VALSARTAN
  6. BENDAMUSTINE [Suspect]
     Active Substance: BENDAMUSTINE
     Indication: B-CELL LYMPHOMA
     Route: 042
     Dates: start: 20130715
  7. NOVALGIN [Concomitant]
     Active Substance: METAMIZOLE SODIUM
  8. CLOPIDOGREL [Concomitant]
     Active Substance: CLOPIDOGREL BISULFATE
  9. VALSARTAN. [Concomitant]
     Active Substance: VALSARTAN
     Dosage: 320/25
  10. RITUXIMAB [Suspect]
     Active Substance: RITUXIMAB
     Indication: PRODUCT USED FOR UNKNOWN INDICATION
     Dosage: MG M2
     Route: 042
     Dates: start: 20130711
  11. CARVEDILOL. [Concomitant]
     Active Substance: CARVEDILOL
  12. JENACARD [Concomitant]
  13. LOCOL [Concomitant]
     Active Substance: FLUVASTATIN SODIUM
  14. BENDAMUSTINE [Suspect]
     Active Substance: BENDAMUSTINE
     Dates: start: 20131030
  15. PREDNISOLONE. [Suspect]
     Active Substance: PREDNISOLONE
     Indication: PRODUCT USED FOR UNKNOWN INDICATION
     Route: 065
     Dates: start: 20130707
  16. MCP [Concomitant]
     Active Substance: METOCLOPRAMIDE HYDROCHLORIDE
  17. CARMEN [Concomitant]
     Active Substance: LERCANIDIPINE
  18. MOXONIDINE [Concomitant]
     Active Substance: MOXONIDINE
  19. ISOSORBIDE DINITRATE. [Concomitant]
     Active Substance: ISOSORBIDE DINITRATE
  20. FLUVASTATIN SODIUM. [Concomitant]
     Active Substance: FLUVASTATIN SODIUM
  21. MOXONIDIN [Concomitant]
     Active Substance: MOXONIDINE
  22. CARBOPLATIN. [Concomitant]
     Active Substance: CARBOPLATIN
  23. METOCLOPRAMIDE. [Concomitant]
     Active Substance: METOCLOPRAMIDE

REACTIONS (2)
  - Atypical pneumonia [Recovered/Resolved]
  - Renal cell carcinoma [Not Recovered/Not Resolved]

NARRATIVE: CASE EVENT DATE: 20131011
